FAERS Safety Report 6740061-8 (Version None)
Quarter: 2010Q2

REPORT INFORMATION
  Report Type: 
  Country: None (occurrence: None)
  Receive Date: 20100525
  Receipt Date: 20100519
  Transmission Date: 20101027
  Serious: Yes (Hospitalization, Other)
  Sender: FDA-Public Use
  Company Number: US-PFIZER INC-2008045803

PATIENT
  Sex: Female
  Weight: 98.186 kg

DRUGS (10)
  1. PIROXICAM [Suspect]
     Indication: OSTEOARTHRITIS
     Dosage: 20 MG, 1X/DAY
     Route: 048
     Dates: start: 20071101, end: 20080219
  2. *IBUPROFEN [Suspect]
     Indication: OSTEOARTHRITIS
     Dosage: 600 MG, 3X/DAY
     Route: 048
     Dates: start: 20070808, end: 20071101
  3. HYDROCHLOROTHIAZIDE [Concomitant]
     Indication: HYPERTENSION
     Dosage: QD
     Dates: start: 20070404
  4. HYDROCHLOROTHIAZIDE [Concomitant]
     Indication: OEDEMA
  5. ZANAFLEX [Concomitant]
     Indication: MUSCLE SPASMS
     Dosage: 2 CAPSULES,QHS
     Dates: start: 20051202
  6. ULTRAM [Concomitant]
     Indication: BACK PAIN
     Dosage: QID
     Dates: start: 20071101
  7. ULTRAM [Concomitant]
     Indication: ARTHRITIS
  8. PREGABALIN [Concomitant]
     Indication: PARAESTHESIA
     Dosage: QID
     Dates: start: 20071227
  9. MIRAPEX [Concomitant]
     Indication: RESTLESS LEGS SYNDROME
     Dosage: QD
     Dates: start: 20071101
  10. PREMARIN [Concomitant]
     Indication: HORMONE REPLACEMENT THERAPY
     Dosage: QD
     Dates: start: 20070907

REACTIONS (1)
  - NON-CARDIAC CHEST PAIN [None]
